FAERS Safety Report 6574137-5 (Version None)
Quarter: 2010Q1

REPORT INFORMATION
  Report Type: 
  Country: None (occurrence: None)
  Receive Date: 20100208
  Receipt Date: 20100203
  Transmission Date: 20100710
  Serious: Yes (Hospitalization)
  Sender: FDA-Public Use
  Company Number: BE-ROCHE-607946

PATIENT
  Sex: Male
  Weight: 65.9 kg

DRUGS (22)
  1. BEVACIZUMAB [Suspect]
     Indication: NON-SMALL CELL LUNG CANCER
     Dosage: FORM: FLUID. TEMPORARILY INTERRUPTED LAST DOSE: 13 NOVEMBER 2008
     Route: 042
     Dates: start: 20080828, end: 20081113
  2. BEVACIZUMAB [Suspect]
     Dosage: REPORTED FORM: FLUID.   LAST DOSE PRIOR TO SAE: 08 JANUARY 2009
     Route: 042
     Dates: start: 20081217
  3. CISPLATIN [Suspect]
     Indication: NON-SMALL CELL LUNG CANCER
     Dosage: FORM: FLUID. TEMPORARILY INTERRUPTED LAST DOSE: 13 NOVEMBER 2008
     Route: 042
     Dates: start: 20080828, end: 20081113
  4. CISPLATIN [Suspect]
     Dosage: DOSAGE REDUCED
     Route: 042
     Dates: start: 20081217
  5. CISPLATIN [Suspect]
     Dosage: REPORTED FORM: FLUID.   LAST DOSE PRIOR TO SAE: 08 JANUARY 2009
     Route: 042
  6. GEMZAR [Suspect]
     Indication: NON-SMALL CELL LUNG CANCER
     Dosage: FORM: FLUID. FREQUENCY:DAY 1 TO 8 EVERY 3 WEEK. LAST DOSE:19 NOV 2008 DRUG NAME:GEMZAR
     Route: 042
     Dates: start: 20080828, end: 20081119
  7. GEMZAR [Suspect]
     Dosage: DAY ONE AND DAY 8, ONCE EVERY THREE WEEKS. DOSAGE REDUCED
     Route: 042
     Dates: start: 20081217
  8. GEMZAR [Suspect]
     Dosage: FREQUENCY: DAY 1+8Q3WEEKS.   LAST DOSE PRIOR TO SAE: 08 JANUARY 2009
     Route: 042
  9. SIMVASTATIN [Concomitant]
     Dates: start: 19980101
  10. CELECTOL [Concomitant]
     Dates: start: 19870101, end: 20090110
  11. CELECTOL [Concomitant]
     Dates: start: 20090111
  12. ASAFLOW [Concomitant]
     Dates: start: 19870101, end: 20081108
  13. ASAFLOW [Concomitant]
     Dates: start: 20081111, end: 20081126
  14. ASAFLOW [Concomitant]
     Dates: start: 20081203, end: 20090109
  15. REDOMEX [Concomitant]
     Dates: start: 20080626
  16. DAFALGAN [Concomitant]
     Dates: start: 20081112
  17. EMCONCOR [Concomitant]
     Dates: start: 20080814, end: 20090110
  18. STILNOCT [Concomitant]
     Dates: start: 20080826
  19. OMEPRAZOLE [Concomitant]
     Dates: start: 20081128
  20. DUOVENT [Concomitant]
     Dates: start: 20090110
  21. MOVICOL [Concomitant]
     Dosage: REPORTED TDD: 1 SACHET.
     Dates: start: 20080828, end: 20090110
  22. CONTRAMAL [Concomitant]
     Dates: start: 20081127, end: 20090120

REACTIONS (1)
  - ACUTE PULMONARY OEDEMA [None]
